FAERS Safety Report 26097602 (Version 3)
Quarter: 2025Q4

REPORT INFORMATION
  Report Type: Spontaneous
  Country: JP (occurrence: JP)
  Receive Date: 20251127
  Receipt Date: 20251209
  Transmission Date: 20260118
  Serious: Yes (Other)
  Sender: ELI LILLY AND COMPANY
  Company Number: JP-ELI_LILLY_AND_COMPANY-JP202511025575

PATIENT
  Age: 73 Year
  Sex: Female

DRUGS (2)
  1. OLUMIANT [Suspect]
     Active Substance: BARICITINIB
     Indication: Rheumatoid arthritis
     Dosage: 4 MG, DAILY
     Route: 048
     Dates: start: 202011, end: 20231122
  2. PREDNISOLONE [Concomitant]
     Active Substance: PREDNISOLONE
     Indication: Rheumatoid arthritis
     Dosage: 1 MG, TID
     Route: 048

REACTIONS (1)
  - Renal cell carcinoma [Recovered/Resolved]

NARRATIVE: CASE EVENT DATE: 20231122
